FAERS Safety Report 17582962 (Version 1)
Quarter: 2020Q1

REPORT INFORMATION
  Report Type: Spontaneous
  Country: US (occurrence: US)
  Receive Date: 20200325
  Receipt Date: 20200325
  Transmission Date: 20200409
  Serious: No
  Sender: FDA-Public Use
  Company Number: US-ENDO PHARMACEUTICALS INC-2020-002073

PATIENT
  Sex: Male
  Weight: 108.84 kg

DRUGS (1)
  1. AVEED [Suspect]
     Active Substance: TESTOSTERONE UNDECANOATE
     Indication: PRODUCT USED FOR UNKNOWN INDICATION
     Dosage: UNK UNKNOWN, SINGLE
     Route: 065
     Dates: start: 201911, end: 201911

REACTIONS (9)
  - Dysgeusia [Recovered/Resolved]
  - Feeling hot [Unknown]
  - Hot flush [Not Recovered/Not Resolved]
  - Feeling cold [Unknown]
  - Hyperhidrosis [Unknown]
  - Fatigue [Not Recovered/Not Resolved]
  - Vision blurred [Not Recovered/Not Resolved]
  - Diplopia [Not Recovered/Not Resolved]
  - Treatment noncompliance [Unknown]

NARRATIVE: CASE EVENT DATE: 2019
